FAERS Safety Report 8072752-3 (Version None)
Quarter: 2012Q1

REPORT INFORMATION
  Report Type: 
  Country: None (occurrence: None)
  Receive Date: 20120126
  Receipt Date: 20120116
  Transmission Date: 20120608
  Serious: Yes (Other)
  Sender: FDA-Public Use
  Company Number: IE-JNJFOC-20111207044

PATIENT
  Sex: Female

DRUGS (11)
  1. SIMPONI [Suspect]
     Indication: PSORIATIC ARTHROPATHY
     Route: 058
     Dates: start: 20110714, end: 20111101
  2. TRAMADOL HCL [Concomitant]
  3. PANTOPRAZOLE [Concomitant]
  4. BISOPROLOL FUMARATE [Concomitant]
  5. ISONIAZID [Concomitant]
  6. DIOVAN [Concomitant]
  7. ARCOXIA [Concomitant]
  8. LERCANIDIPINE [Concomitant]
  9. EZETIMIBE [Concomitant]
  10. PYRIDOXINE HCL [Concomitant]
  11. METHOTREXATE [Concomitant]

REACTIONS (3)
  - PALPITATIONS [None]
  - ANXIETY [None]
  - SUICIDAL IDEATION [None]
